FAERS Safety Report 16076183 (Version 1)
Quarter: 2019Q1

REPORT INFORMATION
  Report Type: Spontaneous
  Country: ES (occurrence: ES)
  Receive Date: 20190315
  Receipt Date: 20190315
  Transmission Date: 20190418
  Serious: Yes (Other)
  Sender: FDA-Public Use
  Company Number: ES-ACCORD-112875

PATIENT
  Age: 83 Year
  Sex: Female

DRUGS (17)
  1. LATANOPROST. [Concomitant]
     Active Substance: LATANOPROST
     Indication: CATARACT
     Dosage: STRENGTH 50 MICROGRAMS/ ML
     Route: 047
     Dates: start: 20120124
  2. CALCIUM OSTEO D [Concomitant]
     Indication: PLASMA CELL MYELOMA
     Dosage: STRENGTH 600 MG / 400 IU,60 TABLETS
     Route: 048
     Dates: start: 20171005
  3. QUETIAPINE. [Suspect]
     Active Substance: QUETIAPINE
     Indication: PERSISTENT DEPRESSIVE DISORDER
     Dosage: STRENGTH 25 MG,60 TABLETS
     Dates: start: 20180903, end: 20181003
  4. TRYPTIZOL [Concomitant]
     Active Substance: AMITRIPTYLINE HYDROCHLORIDE
     Indication: PLASMA CELL MYELOMA
     Dosage: STRENGTH 25 MG,60 TABLETS
     Route: 048
     Dates: start: 20180119
  5. ACETYLSALICYLIC ACID BAYFARMA [Concomitant]
     Indication: DISEASE RISK FACTOR
     Dosage: STRENGTH 100 MG
     Route: 048
     Dates: start: 20120320
  6. PARACETAMOL [Concomitant]
     Active Substance: ACETAMINOPHEN
     Indication: PLASMA CELL MYELOMA
     Dosage: STRENGTH 500 MG,20 TABLETS
     Route: 048
     Dates: start: 20180118
  7. CANDESARTAN. [Concomitant]
     Active Substance: CANDESARTAN
     Indication: PRODUCT USED FOR UNKNOWN INDICATION
     Dosage: STRENGTH 4 MG,14 TABLETS
     Route: 048
     Dates: start: 20111108
  8. LORMETAZEPAM [Concomitant]
     Active Substance: LORMETAZEPAM
     Indication: CEREBRAL ISCHAEMIA
     Dosage: STRENGTH 2 MG, 20 TABLETS
     Route: 048
     Dates: start: 20170515
  9. PANTOPRAZOLE [Concomitant]
     Active Substance: PANTOPRAZOLE
     Indication: GASTRITIS
     Dosage: STRENGTH 40 MG,28 TABLETS
     Route: 048
     Dates: start: 20151126
  10. FOSTER [Concomitant]
     Active Substance: BECLOMETHASONE\FORMOTEROL
     Indication: ASTHMA
     Dosage: 100/6 UG/ PULSE SOLUTION FOR INHALATION IN PRESSURIZED CONTAINER, 1 INHALER 120-DOSE,1 PUFF C/12 H
     Route: 055
     Dates: start: 20120124
  11. ATROVENT [Concomitant]
     Active Substance: IPRATROPIUM BROMIDE
     Indication: ASTHMA
     Dosage: STRENGTH 20 MICROGRAMS,FOR INHALATION IN PRESSURE PACK, 1 INHALER 200 DOSES
     Route: 055
     Dates: start: 20180413
  12. VENLAFAXINE/VENLAFAXINE HYDROCHLORIDE [Concomitant]
     Indication: PERSISTENT DEPRESSIVE DISORDER
     Dosage: STRENGTH 50 MG, 30 TABLETS
     Route: 048
     Dates: start: 20110314
  13. ALPRAZOLAM. [Concomitant]
     Active Substance: ALPRAZOLAM
     Indication: PRODUCT USED FOR UNKNOWN INDICATION
     Dosage: STRENGTH 0.5 MG,30 TABLETS
     Route: 054
     Dates: start: 20110506
  14. PREGABALIN. [Concomitant]
     Active Substance: PREGABALIN
     Indication: CERVICOBRACHIAL SYNDROME
     Dosage: STRENGTH 25 MG,56 TABLETS
     Route: 048
     Dates: start: 20180202
  15. TAPENTADOL [Concomitant]
     Active Substance: TAPENTADOL
     Indication: OSTEOARTHRITIS
     Dosage: STRENGTH 50 MG
     Route: 048
     Dates: start: 20180927
  16. EUTIROX [Concomitant]
     Active Substance: LEVOTHYROXINE SODIUM
     Indication: HYPOTHYROIDISM
     Dosage: STRENGTH 50 UG,100 TABLETS
     Route: 048
     Dates: start: 20120125
  17. CETIRIZINE [Concomitant]
     Active Substance: CETIRIZINE HYDROCHLORIDE
     Indication: CEREBRAL ISCHAEMIA
     Dosage: STRENGTH 10 MG, 20 TABLETS
     Route: 048
     Dates: start: 20120704

REACTIONS (2)
  - Oral mucosal erythema [Recovered/Resolved]
  - Pharyngeal enanthema [Recovered/Resolved]

NARRATIVE: CASE EVENT DATE: 20180927
